FAERS Safety Report 8056840-3 (Version None)
Quarter: 2012Q1

REPORT INFORMATION
  Report Type: 
  Country: None (occurrence: None)
  Receive Date: 20120119
  Receipt Date: 20110628
  Transmission Date: 20120608
  Serious: No
  Sender: FDA-Public Use
  Company Number: US-SANOFI-AVENTIS-2011SA041239

PATIENT
  Sex: Female

DRUGS (1)
  1. LASIX [Suspect]
     Route: 065

REACTIONS (4)
  - THIRST [None]
  - TREMOR [None]
  - BLOOD GLUCOSE INCREASED [None]
  - HYPERHIDROSIS [None]
